FAERS Safety Report 7376163-5 (Version None)
Quarter: 2011Q1

REPORT INFORMATION
  Report Type: 
  Country: None (occurrence: None)
  Receive Date: 20110325
  Receipt Date: 20110309
  Transmission Date: 20110831
  Serious: No
  Sender: FDA-Public Use
  Company Number: US-B.I. PHARMACEUTICALS,INC./RIDGEFIELD-2011-BP-07508BP

PATIENT
  Age: 83 Year
  Sex: Male

DRUGS (8)
  1. NITROSTAT [Concomitant]
     Indication: CARDIAC DISORDER
  2. CARVEDILOL [Concomitant]
     Indication: CARDIAC DISORDER
     Dosage: 6.25 MG
  3. RAMIPRIL [Concomitant]
     Indication: CARDIAC DISORDER
     Dosage: 5 MG
  4. PRADAXA [Suspect]
     Indication: INTRACARDIAC THROMBUS
     Dosage: 300 MG
     Route: 048
     Dates: start: 20110228
  5. LIPITOR [Concomitant]
     Indication: CARDIAC DISORDER
     Dosage: 10 MG
  6. TRIAMTERENE [Concomitant]
     Indication: CARDIAC DISORDER
     Dosage: 37.5 MG
  7. HYDROCHLOROTHIAZIDE [Concomitant]
     Indication: CARDIAC DISORDER
     Dosage: 25 MG
  8. DEXOLINT [Concomitant]
     Indication: CARDIAC DISORDER
     Dosage: 60 MG

REACTIONS (3)
  - ULCER [None]
  - HEADACHE [None]
  - DIZZINESS [None]
